FAERS Safety Report 9129097 (Version 1)
Quarter: 2013Q1

REPORT INFORMATION
  Report Type: Spontaneous
  Country: JP (occurrence: JP)
  Receive Date: 20130125
  Receipt Date: 20130125
  Transmission Date: 20140127
  Serious: Yes (Other)
  Sender: FDA-Public Use
  Company Number: JP-ASTRAZENECA-2013SE03949

PATIENT
  Age: 28 Year
  Sex: Female

DRUGS (3)
  1. DIPRIVAN [Suspect]
     Indication: INDUCTION OF ANAESTHESIA
     Route: 042
  2. REMIFENTANIL HYDROCHLORIDE [Concomitant]
     Indication: INDUCTION OF ANAESTHESIA
     Route: 042
  3. ROCURONIUM BROMIDE [Concomitant]
     Indication: INDUCTION OF ANAESTHESIA
     Route: 042

REACTIONS (1)
  - Ventricular tachycardia [Recovering/Resolving]
